FAERS Safety Report 7829027-4 (Version None)
Quarter: 2011Q4

REPORT INFORMATION
  Report Type: 
  Country: None (occurrence: None)
  Receive Date: 20111020
  Receipt Date: 20111017
  Transmission Date: 20120403
  Serious: Yes (Hospitalization)
  Sender: FDA-Public Use
  Company Number: US-B.I. PHARMACEUTICALS,INC./RIDGEFIELD-2011-BP-02668BP

PATIENT
  Age: 72 Year
  Sex: Female

DRUGS (11)
  1. PRADAXA [Suspect]
     Indication: ATRIAL FIBRILLATION
     Dosage: 300 MG
     Route: 048
     Dates: start: 20110122, end: 20110201
  2. DIGOXIN [Concomitant]
     Indication: ATRIAL FIBRILLATION
  3. LISINOPRIL [Concomitant]
     Indication: HYPERTENSION
  4. RYTHMOL [Concomitant]
  5. GLIPIZIDE [Concomitant]
     Indication: DIABETES MELLITUS
  6. LOVASTATIN [Concomitant]
     Indication: BLOOD CHOLESTEROL INCREASED
  7. ALPRAZOLAM [Concomitant]
     Indication: NERVOUSNESS
  8. METFORMIN HCL [Concomitant]
     Indication: DIABETES MELLITUS
  9. CITALOPRAM HYDROBROMIDE [Concomitant]
  10. PRADAXA [Suspect]
     Indication: CEREBROVASCULAR ACCIDENT PROPHYLAXIS
  11. MIRTAZAPINE [Concomitant]

REACTIONS (7)
  - DIZZINESS [None]
  - DIARRHOEA [None]
  - ANORECTAL DISCOMFORT [None]
  - DIARRHOEA HAEMORRHAGIC [None]
  - RECTAL HAEMORRHAGE [None]
  - FALL [None]
  - HEAD INJURY [None]
